FAERS Safety Report 21654820 (Version 1)
Quarter: 2022Q4

REPORT INFORMATION
  Report Type: Spontaneous
  Country: US (occurrence: US)
  Receive Date: 20221129
  Receipt Date: 20221129
  Transmission Date: 20230113
  Serious: No
  Sender: FDA-Public Use
  Company Number: US-ViiV Healthcare Limited-88365

PATIENT
  Age: 50 Year
  Sex: Female

DRUGS (11)
  1. RILPIVIRINE [Suspect]
     Active Substance: RILPIVIRINE
     Indication: Product used for unknown indication
     Dosage: UNK UNK, Z,600/900,EVERY 2 MONTHS
     Route: 065
     Dates: start: 20220401
  2. RILPIVIRINE [Suspect]
     Active Substance: RILPIVIRINE
     Dosage: UNK UNK, Z,EVERY 2 MONTHS
     Route: 065
     Dates: start: 20220505
  3. RILPIVIRINE [Suspect]
     Active Substance: RILPIVIRINE
     Dosage: UNK UNK, Z,EVERY 2 MONTHS
     Route: 065
     Dates: start: 20220705
  4. RILPIVIRINE [Suspect]
     Active Substance: RILPIVIRINE
     Dosage: UNK UNK, Z,EVERY 2 MONTHS
     Route: 065
     Dates: start: 20220913
  5. RILPIVIRINE [Suspect]
     Active Substance: RILPIVIRINE
     Dosage: UNK UNK, Z,EVERY 2 MONTHS
     Route: 065
     Dates: start: 20221114
  6. CABOTEGRAVIR [Suspect]
     Active Substance: CABOTEGRAVIR
     Indication: Product used for unknown indication
     Dosage: UNK UNK, Z,600/900,EVERY 2 MONTHS
     Route: 065
     Dates: start: 20220401
  7. CABOTEGRAVIR [Suspect]
     Active Substance: CABOTEGRAVIR
     Dosage: UNK UNK, Z,EVERY 2 MONTHS
     Route: 065
     Dates: start: 20220505
  8. CABOTEGRAVIR [Suspect]
     Active Substance: CABOTEGRAVIR
     Dosage: UNK UNK, Z,EVERY 2 MONTHS
     Route: 065
     Dates: start: 20220705
  9. CABOTEGRAVIR [Suspect]
     Active Substance: CABOTEGRAVIR
     Dosage: UNK UNK, Z,EVERY 2 MONTHS
     Route: 065
     Dates: start: 20220913
  10. CABOTEGRAVIR [Suspect]
     Active Substance: CABOTEGRAVIR
     Dosage: UNK UNK, Z,EVERY 2 MONTHS
     Route: 065
     Dates: start: 20221114
  11. TRIUMEQ [Concomitant]
     Active Substance: ABACAVIR SULFATE\DOLUTEGRAVIR SODIUM\LAMIVUDINE
     Indication: Product used for unknown indication
     Dosage: UNK
     Route: 065
     Dates: start: 2015

REACTIONS (1)
  - Viral load increased [Unknown]
